FAERS Safety Report 8408896 (Version 2)
Quarter: 2013Q2

REPORT INFORMATION
  Report Type: Spontaneous
  Country: US (occurrence: None)
  Receive Date: 20111227
  Receipt Date: 20120703
  Transmission Date: 20140414
  Serious: Yes (Other)
  Sender: FDA-Public Use
  Company Number: PHEH2011US009966

PATIENT
  Age: 41 Year
  Sex: Female
  Weight: 160 kg

DRUGS (4)
  1. GILENYA [Suspect]
     Indication: MULTIPLE SCLEROSIS
     Dosage: 0.5 MG, QD, ORAL
     Route: 048
     Dates: start: 201110, end: 20120221
  2. OBCP [Concomitant]
  3. AMBIEN (ZOLPIDEM TARTRATE) [Concomitant]
  4. DOXYCYCLIN (DOXYCYCLINE) [Concomitant]

REACTIONS (5)
  - INCREASED APPETITE [None]
  - VISUAL IMPAIRMENT [None]
  - ABDOMINAL PAIN UPPER [None]
  - Sinusitis [None]
  - White blood cell count decreased [None]
